FAERS Safety Report 24800153 (Version 2)
Quarter: 2025Q1

REPORT INFORMATION
  Report Type: Spontaneous
  Country: DE (occurrence: DE)
  Receive Date: 20250102
  Receipt Date: 20250109
  Transmission Date: 20250409
  Serious: Yes (Other)
  Sender: INSUD PHARMA
  Company Number: DE-EXELTIS PHARMACEUTICAL HOLDING, S.L.-2412DE09980

PATIENT
  Age: 44 Year
  Sex: Female
  Weight: 62 kg

DRUGS (4)
  1. DROSPIRENONE [Suspect]
     Active Substance: DROSPIRENONE
     Indication: Menstrual cycle management
     Dosage: 4 MILLIGRAM, QD
     Dates: start: 20241121, end: 20241212
  2. DROSPIRENONE [Suspect]
     Active Substance: DROSPIRENONE
     Dates: start: 20241216
  3. ESTRADIOL [Concomitant]
     Active Substance: ESTRADIOL
     Dosage: UNK UNK, BID
     Route: 062
     Dates: start: 20241106, end: 20241212
  4. PROGESTERONE [Concomitant]
     Active Substance: PROGESTERONE
     Route: 062
     Dates: start: 20241107, end: 20241212

REACTIONS (11)
  - Suicidal ideation [Recovered/Resolved]
  - Depressed mood [Recovered/Resolved]
  - Restlessness [Recovered/Resolved]
  - Cystitis [Not Recovered/Not Resolved]
  - Product use in unapproved indication [Unknown]
  - Nasal congestion [Unknown]
  - Dizziness [Unknown]
  - Headache [Unknown]
  - Subcutaneous abscess [Unknown]
  - Seborrhoea [Unknown]
  - Seborrhoea [Unknown]

NARRATIVE: CASE EVENT DATE: 20241222
